FAERS Safety Report 8107265-3 (Version None)
Quarter: 2012Q1

REPORT INFORMATION
  Report Type: 
  Country: None (occurrence: None)
  Receive Date: 20120202
  Receipt Date: 20120120
  Transmission Date: 20120608
  Serious: Yes (Other)
  Sender: FDA-Public Use
  Company Number: JP-NAPPMUNDI-MAG-2012-0002004

PATIENT
  Age: 73 Year
  Sex: Female

DRUGS (17)
  1. MELBIN                             /00082702/ [Concomitant]
     Indication: DIABETES MELLITUS
     Dosage: UNK
     Route: 048
     Dates: start: 20111212
  2. DOXAZOSIN MESYLATE [Concomitant]
     Indication: HYPERTENSION
     Dosage: UNK
     Route: 048
     Dates: start: 20111212
  3. EQUA [Concomitant]
     Indication: DIABETES MELLITUS
     Dosage: UNK
     Route: 048
     Dates: start: 20111212
  4. GENINAX [Concomitant]
     Dosage: UNK
     Route: 065
     Dates: start: 20111208, end: 20111219
  5. ALEISON [Concomitant]
     Dosage: UNK
     Route: 065
     Dates: start: 20120110, end: 20120116
  6. CANDESARTAN CILEXETIL [Concomitant]
     Indication: HYPERTENSION
     Dosage: UNK
     Route: 048
     Dates: start: 20111212
  7. TICLOPIDINE HCL [Concomitant]
     Indication: THROMBOSIS PROPHYLAXIS
     Dosage: UNK
     Route: 048
     Dates: start: 20111212
  8. LOXONIN [Concomitant]
     Dosage: UNK
     Route: 065
     Dates: start: 20111208, end: 20111226
  9. BUPRENORPHINE [Suspect]
     Dosage: 5 MCG, Q1H
     Route: 062
     Dates: start: 20111122, end: 20111201
  10. AMARYL [Concomitant]
     Indication: DIABETES MELLITUS
     Dosage: UNK
     Route: 048
     Dates: start: 20111212
  11. BUPRENORPHINE [Suspect]
     Dosage: 10 MCG, Q1H
     Route: 062
     Dates: start: 20111202, end: 20111228
  12. LASIX [Concomitant]
     Indication: HYPERTENSION
     Dosage: UNK
     Route: 065
     Dates: start: 20111212
  13. KEISHI-KA-SHAKUYAKU-TO [Concomitant]
     Indication: RECTAL TENESMUS
     Dosage: UNK
     Route: 065
     Dates: start: 20120111, end: 20120119
  14. BUPRENORPHINE [Suspect]
     Indication: ARTHRITIS
     Dosage: 20 MCG, Q1H
     Route: 062
     Dates: start: 20111229, end: 20120106
  15. SELBEX [Concomitant]
     Dosage: UNK
     Route: 048
     Dates: start: 20111212
  16. ATELEC [Concomitant]
     Indication: HYPERTENSION
     Dosage: UNK
     Route: 048
     Dates: start: 20111212
  17. KINEDAK [Concomitant]
     Indication: DIABETES MELLITUS
     Dosage: UNK
     Route: 048
     Dates: start: 20111212

REACTIONS (6)
  - PULMONARY INFARCTION [None]
  - MALAISE [None]
  - NAUSEA [None]
  - NASOPHARYNGITIS [None]
  - VOMITING [None]
  - ABDOMINAL PAIN UPPER [None]
